FAERS Safety Report 16798209 (Version 1)
Quarter: 2019Q3

REPORT INFORMATION
  Report Type: Spontaneous
  Country: US (occurrence: US)
  Receive Date: 20190912
  Receipt Date: 20190912
  Transmission Date: 20191005
  Serious: Yes (Other)
  Sender: FDA-Public Use
  Company Number: US-ASTRAZENECA-2019SF26910

PATIENT

DRUGS (1)
  1. BYETTA [Suspect]
     Active Substance: EXENATIDE
     Dosage: 10TIMES THE NORMAL DOSE
     Route: 065

REACTIONS (4)
  - Vomiting [Unknown]
  - Accidental overdose [Unknown]
  - Hypoglycaemia [Unknown]
  - Nausea [Unknown]
